FAERS Safety Report 18923271 (Version 1)
Quarter: 2021Q1

REPORT INFORMATION
  Report Type: Spontaneous
  Country: US (occurrence: US)
  Receive Date: 20210222
  Receipt Date: 20210222
  Transmission Date: 20210420
  Serious: Yes (Other)
  Sender: FDA-Public Use
  Company Number: US-PFIZER INC-2003001069

PATIENT
  Age: 38 Year
  Sex: Male

DRUGS (15)
  1. MULTIVITAMINS [Concomitant]
     Active Substance: VITAMINS
     Dosage: UNK, DAILY
  2. FLUCONAZOLE. [Suspect]
     Active Substance: FLUCONAZOLE
     Indication: TINEA CRURIS
     Dosage: 200 MG, DAILY
     Route: 042
  3. DANTROLENE. [Concomitant]
     Active Substance: DANTROLENE SODIUM
     Dosage: 25 MG, 4X/DAY
  4. GENTAMICIN. [Concomitant]
     Active Substance: GENTAMICIN
     Dosage: UNK
  5. FLUCONAZOLE. [Interacting]
     Active Substance: FLUCONAZOLE
     Indication: SYSTEMIC CANDIDA
     Dosage: 400 MG, DAILY (START OF A 21?DAY COURSE)
     Route: 042
  6. CARBAMAZEPINE. [Interacting]
     Active Substance: CARBAMAZEPINE
     Indication: SEIZURE
     Dosage: 1000 MG, DAILY (200 MG TID AND 400 MG AT BEDTIME)
  7. CARBAMAZEPINE. [Interacting]
     Active Substance: CARBAMAZEPINE
     Dosage: 1200 MG, DAILY (400 MG AT 8 AM, 200 MG AT NOON, 200 MG AT 4 PM, AND 400 MG AT 8 PM)
  8. RANITIDINE. [Concomitant]
     Active Substance: RANITIDINE
     Dosage: 150 MG, DAILY (AT BEDTIME)
  9. CISAPRIDE [Concomitant]
     Active Substance: CISAPRIDE
     Dosage: CISAPRIDE (10 MG BEFORE MEALS AND AT BEDTIME)
     Route: 065
  10. CLONAZEPAM. [Concomitant]
     Active Substance: CLONAZEPAM
     Dosage: 2.5 MG (1 MG EVERY MORNING AND 1.5 MG EVERY EVENING)
  11. LACTULOSE. [Concomitant]
     Active Substance: LACTULOSE
     Dosage: 30 ML, 3X/DAY
  12. PIPERACILLIN AND TAZOBACTAM [Concomitant]
     Active Substance: PIPERACILLIN SODIUM\TAZOBACTAM SODIUM
     Dosage: UNK
     Route: 065
  13. LANSOPRAZOLE. [Concomitant]
     Active Substance: LANSOPRAZOLE
     Dosage: 30 MG, DAILY
  14. VANCOMYCIN [Concomitant]
     Active Substance: VANCOMYCIN
     Dosage: UNK
  15. DOCUSATE [Concomitant]
     Active Substance: DOCUSATE
     Dosage: 100 MG, 3X/DAY

REACTIONS (2)
  - Drug interaction [Recovered/Resolved]
  - Anticonvulsant drug level increased [Recovered/Resolved]
